FAERS Safety Report 7064663-7 (Version None)
Quarter: 2010Q4

REPORT INFORMATION
  Report Type: 
  Country: None (occurrence: None)
  Receive Date: 20101025
  Receipt Date: 20101025
  Transmission Date: 20110411
  Serious: Yes (Other)
  Sender: FDA-Public Use
  Company Number: None

PATIENT
  Age: 56 Year
  Sex: Female
  Weight: 90.7194 kg

DRUGS (6)
  1. TOPAMAX [Suspect]
     Indication: NEUROPATHY PERIPHERAL
     Dosage: 50 MG DAILY ORAL
     Route: 048
     Dates: start: 20070211, end: 20100501
  2. COPAXONE [Concomitant]
  3. LIPITOR [Concomitant]
  4. SERTROLINE [Concomitant]
  5. METANX [Concomitant]
  6. VITAMIN D [Concomitant]

REACTIONS (1)
  - NEPHROLITHIASIS [None]
